FAERS Safety Report 9130269 (Version 1)
Quarter: 2013Q1

REPORT INFORMATION
  Report Type: Spontaneous
  Country: NO (occurrence: NO)
  Receive Date: 20130301
  Receipt Date: 20130301
  Transmission Date: 20140127
  Serious: Yes (Death)
  Sender: FDA-Public Use
  Company Number: NO-MYLANLABS-2013S1004326

PATIENT
  Age: 73 Year
  Sex: Female

DRUGS (2)
  1. NAPROXEN [Suspect]
     Indication: PAIN
     Route: 048
     Dates: start: 201208, end: 20120829
  2. ATENOLOL [Concomitant]
     Indication: HYPERTENSION
     Route: 048
     Dates: end: 20120829

REACTIONS (4)
  - Gastric ulcer perforation [Fatal]
  - Acute respiratory failure [Unknown]
  - Metabolic acidosis [Unknown]
  - Sepsis [Unknown]
